FAERS Safety Report 7564031-5 (Version None)
Quarter: 2011Q2

REPORT INFORMATION
  Report Type: 
  Country: None (occurrence: None)
  Receive Date: 20110622
  Receipt Date: 20110617
  Transmission Date: 20111010
  Serious: Yes (Hospitalization)
  Sender: FDA-Public Use
  Company Number: DE-SANOFI-AVENTIS-2011SA038555

PATIENT
  Age: 72 Year
  Sex: Male
  Weight: 92 kg

DRUGS (6)
  1. LEUCOVORIN CALCIUM [Suspect]
     Route: 041
     Dates: start: 20110603, end: 20110603
  2. PANTOPRAZOLE [Concomitant]
     Route: 048
     Dates: start: 20110505
  3. OXALIPLATIN [Suspect]
     Route: 041
     Dates: start: 20110603, end: 20110603
  4. DOCETAXEL [Suspect]
     Route: 041
     Dates: start: 20110603, end: 20110603
  5. FLUOROURACIL [Suspect]
     Route: 041
     Dates: start: 20110603, end: 20110603
  6. THYRONAJOD [Concomitant]
     Route: 048
     Dates: start: 19960101

REACTIONS (2)
  - ANAL ABSCESS [None]
  - ANAL FISSURE [None]
